FAERS Safety Report 20712492 (Version 1)
Quarter: 2022Q2

REPORT INFORMATION
  Report Type: Spontaneous
  Country: US (occurrence: US)
  Receive Date: 20220415
  Receipt Date: 20220415
  Transmission Date: 20220721
  Serious: No
  Sender: FDA-Public Use
  Company Number: US-AUROBINDO-AUR-APL-2021-040626

PATIENT
  Sex: Male

DRUGS (1)
  1. ETOMIDATE [Suspect]
     Active Substance: ETOMIDATE
     Indication: Cardioversion
     Dosage: 10 MILLIGRAM
     Route: 065

REACTIONS (9)
  - Hypoaesthesia [Recovered/Resolved]
  - Burning sensation [Recovered/Resolved]
  - Myoclonus [Recovered/Resolved]
  - Feeling abnormal [Recovered/Resolved]
  - Hyperventilation [Recovered/Resolved]
  - Tremor [Recovered/Resolved]
  - Chest discomfort [Recovered/Resolved]
  - Confusional state [Unknown]
  - Anxiety [Unknown]
